FAERS Safety Report 14073923 (Version 1)
Quarter: 2017Q4

REPORT INFORMATION
  Report Type: Spontaneous
  Country: US (occurrence: US)
  Receive Date: 20171010
  Receipt Date: 20171010
  Transmission Date: 20180321
  Serious: No
  Sender: FDA-Public Use
  Company Number: US-JNJFOC-20170912875

PATIENT
  Age: 7 Month
  Sex: Male
  Weight: 9.98 kg

DRUGS (2)
  1. INFANTS TYLENOL [Suspect]
     Active Substance: ACETAMINOPHEN
     Indication: TEETHING
     Route: 048
     Dates: start: 20170910, end: 20170910
  2. INFANTS TYLENOL [Suspect]
     Active Substance: ACETAMINOPHEN
     Indication: PYREXIA
     Route: 048
     Dates: start: 20170910, end: 20170910

REACTIONS (3)
  - Wrong technique in product usage process [Unknown]
  - Expired product administered [Unknown]
  - Syringe issue [Unknown]

NARRATIVE: CASE EVENT DATE: 20170910
